FAERS Safety Report 24868001 (Version 1)
Quarter: 2025Q1

REPORT INFORMATION
  Report Type: Spontaneous
  Country: CN (occurrence: CN)
  Receive Date: 20250121
  Receipt Date: 20250121
  Transmission Date: 20250409
  Serious: Yes (Hospitalization, Other)
  Sender: PFIZER
  Company Number: CN-PFIZER INC-PV202500006607

PATIENT
  Age: 9 Year
  Sex: Female
  Weight: 29.4 kg

DRUGS (2)
  1. CYTARABINE [Suspect]
     Active Substance: CYTARABINE
     Indication: Acute leukaemia
     Dosage: 0.107 G, 1X/DAY
     Route: 041
     Dates: start: 20241118, end: 20241120
  2. CYTARABINE [Suspect]
     Active Substance: CYTARABINE
     Dosage: 0.214 G, 1X/DAY
     Route: 041
     Dates: start: 20241120, end: 20241125

REACTIONS (9)
  - Upper gastrointestinal haemorrhage [Recovering/Resolving]
  - Vomiting [Recovering/Resolving]
  - Abdominal pain upper [Recovering/Resolving]
  - Abdominal distension [Recovering/Resolving]
  - Diarrhoea [Recovering/Resolving]
  - Haematemesis [Recovering/Resolving]
  - Blood potassium decreased [Recovering/Resolving]
  - Nausea [Recovering/Resolving]
  - Decreased appetite [Recovering/Resolving]

NARRATIVE: CASE EVENT DATE: 20241118
